FAERS Safety Report 25385660 (Version 1)
Quarter: 2025Q2

REPORT INFORMATION
  Report Type: Spontaneous
  Country: US (occurrence: None)
  Receive Date: 20250531
  Receipt Date: 20250531
  Transmission Date: 20250717
  Serious: Yes (Other)
  Sender: FDA-CTU
  Company Number: None

PATIENT
  Age: 36 Year
  Sex: Female
  Weight: 70.2 kg

DRUGS (1)
  1. VENLAFAXINE HYDROCHLORIDE [Suspect]
     Active Substance: VENLAFAXINE HYDROCHLORIDE

REACTIONS (6)
  - Withdrawal syndrome [None]
  - Panic reaction [None]
  - Dizziness [None]
  - Brain fog [None]
  - Anger [None]
  - Suicidal ideation [None]
